FAERS Safety Report 5716460-X (Version None)
Quarter: 2008Q2

REPORT INFORMATION
  Report Type: 
  Country: None (occurrence: None)
  Receive Date: 20080424
  Receipt Date: 20080416
  Transmission Date: 20081010
  Serious: Yes (Hospitalization, Other)
  Sender: FDA-Public Use
  Company Number: US-WYE-H03639208

PATIENT
  Age: 52 Year
  Sex: Female
  Weight: 70.37 kg

DRUGS (4)
  1. EFFEXOR XR [Suspect]
     Indication: DEPRESSION
     Route: 048
     Dates: end: 20080411
  2. ZANTAC [Concomitant]
     Dosage: UNKNOWN
  3. FENTANYL CITRATE [Concomitant]
     Dosage: UNKNOWN
  4. ZOFRAN [Concomitant]
     Dosage: UNKNOWN

REACTIONS (2)
  - SEROTONIN SYNDROME [None]
  - VOLVULUS [None]
